FAERS Safety Report 8866491 (Version 1)
Quarter: 2012Q4

REPORT INFORMATION
  Report Type: 
  Country: US (occurrence: US)
  Receive Date: 20121025
  Receipt Date: 20121025
  Transmission Date: 20130627
  Serious: Yes (Hospitalization)
  Sender: FDA-Public Use
  Company Number: US-BRISTOL-MYERS SQUIBB COMPANY-17042854

PATIENT
  Age: 36 Year
  Sex: Male

DRUGS (11)
  1. REYATAZ [Suspect]
     Dates: start: 20120920, end: 20120927
  2. EPZICOM [Suspect]
     Dates: start: 20120920, end: 20120927
  3. EMTRICITABINE [Concomitant]
  4. ABACAVIR [Concomitant]
  5. SEROQUEL [Concomitant]
  6. TRILEPTAL [Concomitant]
  7. LITHIUM [Concomitant]
  8. BACTRIM DS [Concomitant]
  9. NEUPOGEN [Concomitant]
     Route: 058
  10. COLACE [Concomitant]
  11. SENOKOT [Concomitant]

REACTIONS (2)
  - Renal failure [Unknown]
  - Myositis [Unknown]
